FAERS Safety Report 7879454-4 (Version None)
Quarter: 2011Q4

REPORT INFORMATION
  Report Type: 
  Country: None (occurrence: None)
  Receive Date: 20111101
  Receipt Date: 20111021
  Transmission Date: 20120403
  Serious: Yes (Hospitalization)
  Sender: FDA-Public Use
  Company Number: US-BAYER-2011-048172

PATIENT
  Age: 26 Year
  Sex: Female
  Weight: 83.9 kg

DRUGS (1)
  1. YAZ [Suspect]
     Indication: CONTRACEPTION
     Dosage: UNK
     Dates: start: 20090101, end: 20090101

REACTIONS (2)
  - PAIN [None]
  - PULMONARY EMBOLISM [None]
